FAERS Safety Report 25463225 (Version 1)
Quarter: 2025Q2

REPORT INFORMATION
  Report Type: Report from Study
  Country: US (occurrence: US)
  Receive Date: 20250620
  Receipt Date: 20250620
  Transmission Date: 20250717
  Serious: Yes (Hospitalization, Other)
  Sender: PFIZER
  Company Number: US-PFIZER INC-PV202500047135

PATIENT
  Age: 83 Year
  Sex: Male

DRUGS (1)
  1. VYNDAMAX [Suspect]
     Active Substance: TAFAMIDIS
     Dates: start: 202412

REACTIONS (3)
  - Dyspnoea [Unknown]
  - Cardiac failure [Unknown]
  - Hypervolaemia [Unknown]

NARRATIVE: CASE EVENT DATE: 20250401
